FAERS Safety Report 23947061 (Version 4)
Quarter: 2024Q3

REPORT INFORMATION
  Report Type: Report from Study
  Country: BR (occurrence: BR)
  Receive Date: 20240606
  Receipt Date: 20240724
  Transmission Date: 20241016
  Serious: Yes (Other)
  Sender: BAYER
  Company Number: BR-BAYER-2024A077398

PATIENT
  Age: 57 Year
  Sex: Male

DRUGS (6)
  1. NEXAVAR [Suspect]
     Active Substance: SORAFENIB
     Indication: Hepatocellular carcinoma
     Dosage: 200 MG, BID
     Dates: start: 202403, end: 202404
  2. NEXAVAR [Suspect]
     Active Substance: SORAFENIB
     Indication: Hepatocellular carcinoma
     Dosage: 200 MG, BID
     Dates: end: 202405
  3. NEXAVAR [Suspect]
     Active Substance: SORAFENIB
     Indication: Hepatocellular carcinoma
     Dosage: 200 MG, BID
     Dates: end: 20240627
  4. NEXAVAR [Suspect]
     Active Substance: SORAFENIB
     Indication: Hepatocellular carcinoma
     Dosage: 200 MG, BID
     Dates: start: 20240628
  5. PROPRANOLOL HYDROCHLORIDE [Concomitant]
     Active Substance: PROPRANOLOL HYDROCHLORIDE
     Indication: Hypertension
     Dosage: 20 MG, BID
     Dates: start: 202208
  6. PROPRANOLOL HYDROCHLORIDE [Concomitant]
     Active Substance: PROPRANOLOL HYDROCHLORIDE
     Indication: Hypertension
     Dosage: 20 MG, BID
     Dates: start: 202301

REACTIONS (16)
  - Gait disturbance [Recovering/Resolving]
  - Pain in extremity [Not Recovered/Not Resolved]
  - Hyperkeratosis [Not Recovered/Not Resolved]
  - Pain in extremity [Not Recovered/Not Resolved]
  - Headache [Recovered/Resolved]
  - Pyrexia [Recovered/Resolved]
  - Alopecia [Recovered/Resolved]
  - Skin exfoliation [Recovering/Resolving]
  - Sensitive skin [Recovering/Resolving]
  - Skin disorder [Recovering/Resolving]
  - Skin hypertrophy [Recovering/Resolving]
  - Alopecia [Not Recovered/Not Resolved]
  - Palmar-plantar erythrodysaesthesia syndrome [Not Recovered/Not Resolved]
  - Skin warm [Not Recovered/Not Resolved]
  - Off label use [None]
  - Dry skin [Recovering/Resolving]

NARRATIVE: CASE EVENT DATE: 20240301
